FAERS Safety Report 24737291 (Version 1)
Quarter: 2024Q4

REPORT INFORMATION
  Report Type: Spontaneous
  Country: US (occurrence: US)
  Receive Date: 20241216
  Receipt Date: 20241216
  Transmission Date: 20250114
  Serious: No
  Sender: ALVOGEN
  Company Number: US-ALVOGEN-2023092592

PATIENT
  Sex: Female

DRUGS (6)
  1. FENTANYL [Suspect]
     Active Substance: FENTANYL
     Indication: Abdominal pain upper
     Dosage: EXPIRATION DATE: UU-AUG-2026.?25MCG/HR
  2. FENTANYL [Suspect]
     Active Substance: FENTANYL
     Indication: Abdominal pain upper
     Dosage: THE PATIENT WAS DOING BAD, SHE RANDOMLY SWAPS THE PATCH WITH A DIFFERENT ONE AND 15 MINUTES LATER.
  3. FENTANYL [Suspect]
     Active Substance: FENTANYL
     Indication: Abdominal pain upper
     Dosage: FROM PAST 5 YEARS
  4. ZOLPIDEM [Concomitant]
     Active Substance: ZOLPIDEM TARTRATE
     Indication: Product used for unknown indication
  5. IBUPROFEN [Concomitant]
     Active Substance: IBUPROFEN
     Indication: Product used for unknown indication
  6. PROZAC [Concomitant]
     Active Substance: FLUOXETINE HYDROCHLORIDE
     Indication: Product used for unknown indication

REACTIONS (8)
  - Feeling abnormal [Recovered/Resolved]
  - Myalgia [Unknown]
  - Chills [Unknown]
  - Influenza like illness [Unknown]
  - Nausea [Unknown]
  - Pyrexia [Unknown]
  - Product quality issue [Unknown]
  - Wrong technique in device usage process [Unknown]
